FAERS Safety Report 15833534 (Version 2)
Quarter: 2019Q1

REPORT INFORMATION
  Report Type: Spontaneous
  Country: US (occurrence: US)
  Receive Date: 20190116
  Receipt Date: 20190219
  Transmission Date: 20190417
  Serious: Yes (Other)
  Sender: FDA-Public Use
  Company Number: US-SA-2019SA008243

PATIENT
  Age: 56 Year
  Sex: Female

DRUGS (8)
  1. CYTOXAN [Concomitant]
     Active Substance: CYCLOPHOSPHAMIDE
     Dosage: 1146 MG
     Dates: start: 20130904
  2. TAXOTERE [Suspect]
     Active Substance: DOCETAXEL
     Dosage: 146 MG
     Route: 042
     Dates: start: 20130925, end: 20130925
  3. CYTOXAN [Concomitant]
     Active Substance: CYCLOPHOSPHAMIDE
     Dosage: 1146 MG
     Dates: start: 20130724
  4. TAXOTERE [Suspect]
     Active Substance: DOCETAXEL
     Dosage: 143 MG
     Route: 042
     Dates: start: 20130904, end: 20130904
  5. CYTOXAN [Concomitant]
     Active Substance: CYCLOPHOSPHAMIDE
     Dosage: 1170 MG
     Dates: start: 20130925
  6. TAXOTERE [Suspect]
     Active Substance: DOCETAXEL
     Dosage: 143 MG
     Route: 042
     Dates: start: 20130814, end: 20130814
  7. TAXOTERE [Suspect]
     Active Substance: DOCETAXEL
     Indication: BREAST CANCER FEMALE
     Dosage: 143 MG
     Route: 042
     Dates: start: 20130724, end: 20130724
  8. CYTOXAN [Concomitant]
     Active Substance: CYCLOPHOSPHAMIDE
     Dosage: 1146 MG
     Dates: start: 20130814

REACTIONS (5)
  - Emotional distress [Unknown]
  - Anxiety [Unknown]
  - Impaired quality of life [Unknown]
  - Alopecia [Not Recovered/Not Resolved]
  - Pain [Unknown]
